FAERS Safety Report 18135420 (Version 2)
Quarter: 2020Q3

REPORT INFORMATION
  Report Type: Other
  Country: DE (occurrence: DE)
  Receive Date: 20200811
  Receipt Date: 20200814
  Transmission Date: 20201103
  Serious: Yes (Life-Threatening)
  Sender: FDA-Public Use
  Company Number: DE-GLENMARK PHARMACEUTICALS-2019GMK044252

PATIENT

DRUGS (1)
  1. EZETIMIBE. [Suspect]
     Active Substance: EZETIMIBE
     Indication: BLOOD CHOLESTEROL INCREASED
     Dosage: 10 MILLIGRAM, OD
     Route: 048
     Dates: start: 20180719, end: 20180726

REACTIONS (9)
  - Dry mouth [Recovered/Resolved]
  - Cardiac disorder [Not Recovered/Not Resolved]
  - Eye discharge [Recovered/Resolved]
  - Myalgia [Recovered/Resolved]
  - Muscle atrophy [Not Recovered/Not Resolved]
  - Gait disturbance [Not Recovered/Not Resolved]
  - Accommodation disorder [Not Recovered/Not Resolved]
  - Cold sweat [Unknown]
  - Cough [Unknown]

NARRATIVE: CASE EVENT DATE: 2018
